FAERS Safety Report 20220054 (Version 1)
Quarter: 2021Q4

REPORT INFORMATION
  Report Type: Spontaneous
  Country: JP (occurrence: JP)
  Receive Date: 20211222
  Receipt Date: 20211222
  Transmission Date: 20220303
  Serious: Yes (Hospitalization, Other)
  Sender: FDA-Public Use
  Company Number: JP-SA-2021SA422630

PATIENT
  Age: 75 Year
  Sex: Male

DRUGS (2)
  1. PLAVIX [Suspect]
     Active Substance: CLOPIDOGREL BISULFATE
     Indication: Product used for unknown indication
     Dosage: UNK
     Route: 048
  2. PLAVIX [Suspect]
     Active Substance: CLOPIDOGREL BISULFATE
     Dosage: UNK
     Route: 048
     Dates: end: 2021

REACTIONS (2)
  - Eosinophilic pleural effusion [Recovering/Resolving]
  - Respiratory failure [Recovering/Resolving]

NARRATIVE: CASE EVENT DATE: 20210101
